FAERS Safety Report 10612807 (Version 17)
Quarter: 2017Q2

REPORT INFORMATION
  Report Type: Report from Study
  Country: CA (occurrence: CA)
  Receive Date: 20141127
  Receipt Date: 20170629
  Transmission Date: 20170829
  Serious: Yes (Hospitalization, Other)
  Sender: FDA-Public Use
  Company Number: PHHY2014CA021155

PATIENT
  Age: 62 Year
  Sex: Male

DRUGS (5)
  1. GLEEVEC [Suspect]
     Active Substance: IMATINIB MESYLATE
     Dosage: 400 MG, QD
     Route: 048
     Dates: start: 20141105
  2. GLEEVEC [Suspect]
     Active Substance: IMATINIB MESYLATE
     Indication: GASTROINTESTINAL STROMAL TUMOUR
     Dosage: 400 MG, QD
     Route: 048
     Dates: start: 20140213
  3. VITAMIN B12 [Concomitant]
     Active Substance: CYANOCOBALAMIN
     Indication: PRODUCT USED FOR UNKNOWN INDICATION
     Dosage: QW
     Route: 065
  4. METOCLOPRAMIDE. [Concomitant]
     Active Substance: METOCLOPRAMIDE
     Indication: PRODUCT USED FOR UNKNOWN INDICATION
     Route: 065
  5. IRON [Concomitant]
     Active Substance: IRON
     Indication: PRODUCT USED FOR UNKNOWN INDICATION
     Dosage: UNK
     Route: 065

REACTIONS (42)
  - Lacrimal disorder [Unknown]
  - Skin atrophy [Unknown]
  - Bone density decreased [Unknown]
  - Insomnia [Unknown]
  - Rash [Unknown]
  - Pigmentation disorder [Unknown]
  - Erythema [Unknown]
  - Nocturnal dyspnoea [Unknown]
  - Renal impairment [Unknown]
  - Vitamin D decreased [Unknown]
  - Thyroid mass [Unknown]
  - Dry eye [Not Recovered/Not Resolved]
  - Abdominal distension [Unknown]
  - Frequent bowel movements [Unknown]
  - Haematocrit decreased [Unknown]
  - Diarrhoea [Unknown]
  - Viral upper respiratory tract infection [Unknown]
  - Feeling cold [Unknown]
  - Eye swelling [Recovering/Resolving]
  - Photosensitivity reaction [Unknown]
  - Swelling face [Unknown]
  - Red blood cell count decreased [Unknown]
  - Face oedema [Unknown]
  - Anaemia [Unknown]
  - Weight decreased [Unknown]
  - Ocular hyperaemia [Not Recovered/Not Resolved]
  - Dumping syndrome [Unknown]
  - Eye haemorrhage [Recovering/Resolving]
  - Urine analysis abnormal [Unknown]
  - Abnormal sensation in eye [Unknown]
  - Eye disorder [Unknown]
  - Skin injury [Unknown]
  - Fatigue [Not Recovered/Not Resolved]
  - Pruritus [Unknown]
  - Abdominal pain [Unknown]
  - Haemoglobin decreased [Unknown]
  - Muscle spasms [Recovering/Resolving]
  - Glomerular filtration rate decreased [Unknown]
  - Asthenopia [Unknown]
  - Capillary fragility [Recovering/Resolving]
  - White blood cell count decreased [Unknown]
  - Lacrimation increased [Not Recovered/Not Resolved]

NARRATIVE: CASE EVENT DATE: 201411
